FAERS Safety Report 4475814-2 (Version None)
Quarter: 2004Q4

REPORT INFORMATION
  Report Type: 
  Country: None (occurrence: None)
  Receive Date: 20041015
  Receipt Date: 20041001
  Transmission Date: 20050328
  Serious: Yes (Other)
  Sender: FDA-Public Use
  Company Number: DE-GLAXOSMITHKLINE-D0044840A

PATIENT
  Age: 51 Year
  Sex: Female

DRUGS (2)
  1. ELMENDOS [Suspect]
     Indication: BIPOLAR DISORDER
     Dosage: 100MG TWICE PER DAY
     Route: 048
     Dates: start: 20040401, end: 20040613
  2. DOXEPIN HCL [Concomitant]
     Dosage: 150MG AT NIGHT
     Route: 048

REACTIONS (1)
  - HYPOMANIA [None]
